FAERS Safety Report 5060118-X (Version None)
Quarter: 2006Q3

REPORT INFORMATION
  Report Type: 
  Country: None (occurrence: None)
  Receive Date: 20060724
  Receipt Date: 20060222
  Transmission Date: 20061208
  Serious: Yes (Hospitalization)
  Sender: FDA-Public Use
  Company Number: FRWYE422223FEB06

PATIENT
  Sex: Male
  Weight: 92 kg

DRUGS (5)
  1. ENBREL [Suspect]
     Indication: ANKYLOSING SPONDYLITIS
     Dosage: 50 MG TOTAL WEEKLY
     Route: 058
     Dates: start: 20050603, end: 20060128
  2. INDOCID [Suspect]
     Indication: ANKYLOSING SPONDYLITIS
     Dosage: 75 MG TOTAL DAILY
     Route: 048
     Dates: start: 20050601, end: 20060101
  3. DI-ANTALVIC [Concomitant]
     Indication: ANKYLOSING SPONDYLITIS
     Dosage: 6 CAPSULES TOTAL DAILY
     Route: 048
     Dates: start: 20050101, end: 20060101
  4. SECTRAL [Concomitant]
     Indication: HYPERTENSION
     Route: 048
     Dates: start: 20000101
  5. APROVEL [Concomitant]
     Indication: HYPERTENSION
     Route: 048
     Dates: start: 20000101

REACTIONS (1)
  - AORTIC DISSECTION [None]
